FAERS Safety Report 22673785 (Version 4)
Quarter: 2024Q2

REPORT INFORMATION
  Report Type: Spontaneous
  Country: FR (occurrence: FR)
  Receive Date: 20230705
  Receipt Date: 20240621
  Transmission Date: 20240716
  Serious: Yes (Other)
  Sender: FDA-Public Use
  Company Number: FR-CHEPLA-2023007632

PATIENT
  Age: 30 Year
  Sex: Male

DRUGS (18)
  1. METHOTREXATE SODIUM [Suspect]
     Active Substance: METHOTREXATE SODIUM
     Indication: Pulmonary sarcoidosis
     Dosage: UNK
  2. SOLU-MEDROL [Suspect]
     Active Substance: METHYLPREDNISOLONE SODIUM SUCCINATE
     Indication: Pulmonary sarcoidosis
     Dosage: 120 MG,3-DAY BOLUS
     Dates: start: 20230423
  3. PREDNISONE [Suspect]
     Active Substance: PREDNISONE
     Indication: Pulmonary sarcoidosis
     Dosage: 50 MG, 1X/DAY
     Dates: end: 20190520
  4. PREDNISONE [Suspect]
     Active Substance: PREDNISONE
     Dosage: 20 MG, 1X/DAY
  5. PREDNISONE [Suspect]
     Active Substance: PREDNISONE
     Dosage: 5 MG, WEEKLY
  6. PREDNISONE [Suspect]
     Active Substance: PREDNISONE
     Dosage: 40 MG, 1X/DAY
     Dates: end: 20190527
  7. PREDNISONE [Suspect]
     Active Substance: PREDNISONE
     Dosage: 60 MG, 1X/DAY
     Dates: end: 20190513
  8. PREDNISONE [Suspect]
     Active Substance: PREDNISONE
     Dosage: 30 MG, 1X/DAY
     Dates: end: 20190603
  9. PREDNISONE [Suspect]
     Active Substance: PREDNISONE
     Dosage: 15 MG, 1X/DAY UNTIL THE CONSULTATION IN JUL2019
     Dates: end: 201907
  10. PREDNISONE [Suspect]
     Active Substance: PREDNISONE
     Dosage: 70 MG, 1X/DAY (MORNING AT 8 AM)
     Dates: start: 20190508
  11. DUPIXENT [Concomitant]
     Active Substance: DUPILUMAB
     Indication: Dermatitis atopic
     Dosage: UNK
     Dates: start: 201803
  12. EMOLLIENS [Concomitant]
     Indication: Hand dermatitis
     Dosage: 100 G 1 TO 2 MONTHS
  13. EMOLLIENS [Concomitant]
     Indication: Eczema
  14. OLUMIANT [Concomitant]
     Active Substance: BARICITINIB
     Indication: Dermatitis atopic
     Dosage: 4 MG, 1X/DAY
  15. NERISONE [Concomitant]
     Active Substance: DIFLUCORTOLONE VALERATE
     Indication: Hand dermatitis
     Dosage: USES SMALL AMOUNTS
  16. NERISONE [Concomitant]
     Active Substance: DIFLUCORTOLONE VALERATE
     Indication: Eczema
  17. DESONIDE [Concomitant]
     Active Substance: DESONIDE
     Indication: Eczema
     Dosage: USES SMALL AMOUNTS
  18. DESONIDE [Concomitant]
     Active Substance: DESONIDE
     Indication: Hand dermatitis

REACTIONS (2)
  - Osteonecrosis [Recovering/Resolving]
  - Off label use [Unknown]

NARRATIVE: CASE EVENT DATE: 20210101
